FAERS Safety Report 4709390-3 (Version None)
Quarter: 2005Q3

REPORT INFORMATION
  Report Type: 
  Country: None (occurrence: None)
  Receive Date: 20050708
  Receipt Date: 20050309
  Transmission Date: 20060218
  Serious: Yes (Other)
  Sender: FDA-Public Use
  Company Number: PHNU2005DE01277

PATIENT
  Age: 14 Year
  Sex: Female
  Weight: 59 kg

DRUGS (5)
  1. RITALIN [Suspect]
     Indication: ATTENTION DEFICIT/HYPERACTIVITY DISORDER
     Dosage: UNK, IRD
     Route: 048
     Dates: start: 20040401, end: 20041101
  2. RITALIN - SLOW RELEASE [Concomitant]
     Indication: ATTENTION DEFICIT/HYPERACTIVITY DISORDER
     Dosage: 20 MG, QD
     Route: 048
     Dates: start: 20030101, end: 20040403
  3. RITALIN - SLOW RELEASE [Concomitant]
     Dosage: 20 MG, QD
     Route: 048
     Dates: start: 20041201
  4. L-THYROXIN [Concomitant]
     Indication: AUTOIMMUNE THYROIDITIS
     Dosage: 37.5 MG, QD
     Route: 048
     Dates: start: 20040501
  5. LORATADINE [Concomitant]
     Indication: SEASONAL ALLERGY

REACTIONS (2)
  - DRUG WITHDRAWAL SYNDROME [None]
  - HALLUCINATION, AUDITORY [None]
